FAERS Safety Report 8320457-3 (Version None)
Quarter: 2012Q2

REPORT INFORMATION
  Report Type: 
  Country: None (occurrence: None)
  Receive Date: 20120430
  Receipt Date: 20120426
  Transmission Date: 20120825
  Serious: Yes (Other)
  Sender: FDA-Public Use
  Company Number: US-BAYER-2012-040952

PATIENT
  Age: 50 Year
  Sex: Male
  Weight: 93 kg

DRUGS (9)
  1. LISINOPRIL [Concomitant]
     Dosage: 20 MG, UNK
  2. OMEPRAZOLE [Concomitant]
     Dosage: 20 MG, UNK
  3. VITAMIN C [Concomitant]
     Dosage: 250 MG, UNK
  4. METOPROLOL TARTRATE [Concomitant]
     Dosage: 100 MG, UNK
  5. ONE DAILY [VIT C,B12,D2,B9,B3,B6,RETINOL,B2,B1 HCL,VIT E] [Concomitant]
  6. EFFIENT [Concomitant]
     Dosage: 10 MG, UNK
  7. ATORVASTATIN CALCIUM [Concomitant]
     Dosage: 20 MG, UNK
  8. BETASERON [Suspect]
     Dosage: 0.25 MG, QOD
     Route: 058
  9. ASPIRIN [Concomitant]
     Dosage: 81 MG, UNK

REACTIONS (1)
  - MYOCARDIAL INFARCTION [None]
